FAERS Safety Report 8323173-7 (Version None)
Quarter: 2012Q2

REPORT INFORMATION
  Report Type: 
  Country: None (occurrence: None)
  Receive Date: 20120430
  Receipt Date: 20120416
  Transmission Date: 20120825
  Serious: Yes (Other)
  Sender: FDA-Public Use
  Company Number: US-ENDO PHARMACEUTICALS INC.-PERC20120074

PATIENT
  Sex: Male

DRUGS (1)
  1. PERCOCET [Suspect]
     Indication: PRODUCT USED FOR UNKNOWN INDICATION
     Dosage: 5MG/325MG
     Route: 048

REACTIONS (3)
  - LOSS OF CONSCIOUSNESS [None]
  - FAECAL INCONTINENCE [None]
  - CEREBROVASCULAR ACCIDENT [None]
